FAERS Safety Report 13632726 (Version 1)
Quarter: 2017Q2

REPORT INFORMATION
  Report Type: Report from Study
  Country: US (occurrence: US)
  Receive Date: 20170609
  Receipt Date: 20170609
  Transmission Date: 20170830
  Serious: Yes (Hospitalization)
  Sender: FDA-Public Use
  Company Number: US-AMGEN-USACT2017066324

PATIENT
  Age: 11 Year
  Sex: Male
  Weight: 31.2 kg

DRUGS (35)
  1. DAUNORUBICIN [Suspect]
     Active Substance: DAUNORUBICIN
     Indication: ACUTE LYMPHOCYTIC LEUKAEMIA
     Dosage: 30 UNK, PER CHEMO REGIM
     Route: 065
     Dates: start: 20170320
  2. ZOFRAN [Concomitant]
     Active Substance: ONDANSETRON HYDROCHLORIDE
     Dosage: 5 MG, UNK
     Route: 042
     Dates: start: 20170320, end: 20170425
  3. HEPARIN FLUSH [Concomitant]
     Active Substance: HEPARIN SODIUM
     Dosage: 50 UNK, UNK
     Route: 042
     Dates: start: 20170315, end: 20170414
  4. MICAFUNGIN [Concomitant]
     Active Substance: MICAFUNGIN
     Dosage: 35 MG, UNK
     Route: 042
     Dates: start: 20170324
  5. ELAVIL [Concomitant]
     Active Substance: AMITRIPTYLINE HYDROCHLORIDE
     Dosage: 10 MG, UNK
     Route: 048
     Dates: start: 20160320, end: 20170411
  6. CARFILZOMIB [Suspect]
     Active Substance: CARFILZOMIB
     Indication: ACUTE LYMPHOCYTIC LEUKAEMIA
     Dosage: 30 MG, PER CHEMO REGIM
     Route: 042
     Dates: start: 20170320
  7. PEG/L-ASPARAGINASE [Suspect]
     Active Substance: PEGASPARGASE
     Indication: ACUTE LYMPHOCYTIC LEUKAEMIA
     Dosage: 2775 UNK, PER CHEMO REGIM
     Route: 065
     Dates: start: 20170323
  8. VITAMIN D [Concomitant]
     Active Substance: CHOLECALCIFEROL
     Dosage: 1000 UNK, UNK
     Route: 048
     Dates: start: 20170321
  9. VALACYCLOVIR [Concomitant]
     Active Substance: VALACYCLOVIR HYDROCHLORIDE
     Dosage: 500 MG, UNK
     Route: 048
     Dates: start: 20170321, end: 20170413
  10. OXYCODONE [Concomitant]
     Active Substance: OXYCODONE
     Dosage: 5 MG, UNK
     Route: 048
     Dates: start: 20170401, end: 20170401
  11. AMLODIPINE [Concomitant]
     Active Substance: AMLODIPINE BESYLATE
     Dosage: 2.5 MG, UNK
     Route: 048
     Dates: start: 20170322, end: 20170503
  12. GAMMAGARD [Concomitant]
     Active Substance: HUMAN IMMUNOGLOBULIN G
     Dosage: 15 G, UNK
     Route: 042
     Dates: start: 20170412, end: 20170412
  13. DEXAMETHASONE. [Suspect]
     Active Substance: DEXAMETHASONE
     Indication: ACUTE LYMPHOCYTIC LEUKAEMIA
     Dosage: 6.75 MG, PER CHEMO REGIM
     Route: 065
     Dates: start: 20170320
  14. SOLU-MEDROL [Concomitant]
     Active Substance: METHYLPREDNISOLONE SODIUM SUCCINATE
     Dosage: 30 MG, UNK
     Route: 042
     Dates: start: 20170323, end: 20170406
  15. PANTOPRAZOLE [Concomitant]
     Active Substance: PANTOPRAZOLE
     Dosage: 40 MG, UNK
     Route: 042
     Dates: start: 20170322, end: 20170322
  16. SCOPOLAMINE [Concomitant]
     Active Substance: SCOPOLAMINE
     Dosage: 1.5 MG, UNK
     Route: 062
     Dates: start: 20170319, end: 20170412
  17. MIRALAX [Concomitant]
     Active Substance: POLYETHYLENE GLYCOL 3350
     Dosage: 17 G, UNK
     Route: 048
     Dates: start: 20170401, end: 20170403
  18. SODIUM CHLORIDE. [Concomitant]
     Active Substance: SODIUM CHLORIDE
     Dosage: 1000 ML, UNK
     Route: 042
     Dates: start: 20170320, end: 20170503
  19. ALLOPURINOL. [Concomitant]
     Active Substance: ALLOPURINOL
     Dosage: 200 MG, UNK
     Route: 048
     Dates: start: 20170319, end: 20170321
  20. VITAMIN K [Concomitant]
     Active Substance: PHYTONADIONE
     Dosage: 2 MG, UNK
     Route: 042
     Dates: start: 20170322, end: 20170322
  21. ZANTAC [Concomitant]
     Active Substance: RANITIDINE HYDROCHLORIDE
     Dosage: 75 MG, UNK
     Route: 048
     Dates: start: 20170319, end: 20170412
  22. MEGACE [Concomitant]
     Active Substance: MEGESTROL ACETATE
     Dosage: 40 MG, UNK
     Route: 048
     Dates: start: 20170320, end: 20170330
  23. ACETAMINOPHEN. [Concomitant]
     Active Substance: ACETAMINOPHEN
     Dosage: 500 MG, UNK
     Route: 042
     Dates: start: 20170323, end: 20170323
  24. BACTRIM [Concomitant]
     Active Substance: SULFAMETHOXAZOLE\TRIMETHOPRIM
     Dosage: 160 MG, UNK
     Route: 048
     Dates: start: 20170320
  25. PROZAC [Concomitant]
     Active Substance: FLUOXETINE HYDROCHLORIDE
     Dosage: 10 MG, UNK
     Route: 048
     Dates: start: 20170320
  26. VANCOMYCIN [Concomitant]
     Active Substance: VANCOMYCIN
     Dosage: 350 MG, UNK
     Route: 042
     Dates: start: 20170322, end: 20170324
  27. LEVAQUIN [Concomitant]
     Active Substance: LEVOFLOXACIN
     Dosage: 250 MG, UNK
     Route: 048
     Dates: start: 20170324
  28. BENADRYL [Concomitant]
     Active Substance: DIPHENHYDRAMINE HYDROCHLORIDE
     Dosage: 30 MG, UNK
     Route: 042
     Dates: start: 20170322
  29. LACTOBACILLUS RHAMNOSUS [Concomitant]
     Active Substance: LACTOBACILLUS RHAMNOSUS
     Dosage: 1 UNK, UNK
     Route: 048
     Dates: start: 20170322, end: 20170503
  30. ABILIFY [Concomitant]
     Active Substance: ARIPIPRAZOLE
     Dosage: 2.5 MG, UNK
     Route: 048
     Dates: start: 20170324, end: 20170428
  31. NIFEDIPINE. [Concomitant]
     Active Substance: NIFEDIPINE
     Dosage: 2.5 MG, UNK
     Route: 048
     Dates: start: 20170324, end: 20170501
  32. CEFEPIME [Concomitant]
     Active Substance: CEFEPIME HYDROCHLORIDE
     Dosage: 1500 MG, UNK
     Route: 042
     Dates: start: 20170315, end: 20170420
  33. METHOTREXATE. [Concomitant]
     Active Substance: METHOTREXATE
     Dosage: 15 MG, UNK
     Dates: start: 20170327, end: 20170327
  34. ATIVAN [Concomitant]
     Active Substance: LORAZEPAM
     Dosage: 0.7 MG, UNK
     Route: 048
     Dates: start: 20170322, end: 20170324
  35. VINCRISTINE [Concomitant]
     Active Substance: VINCRISTINE
     Dosage: 1.7 UNK, UNK
     Dates: start: 20170320, end: 20170410

REACTIONS (1)
  - Fusobacterium infection [Recovered/Resolved]

NARRATIVE: CASE EVENT DATE: 20170417
